FAERS Safety Report 5100030-0 (Version None)
Quarter: 2006Q3

REPORT INFORMATION
  Report Type: 
  Country: None (occurrence: None)
  Receive Date: 20060906
  Receipt Date: 20060822
  Transmission Date: 20061208
  Serious: Yes (Death)
  Sender: FDA-Public Use
  Company Number: 2004121728

PATIENT
  Age: 53 Year
  Sex: Male
  Weight: 98.2 kg

DRUGS (8)
  1. SU-011,248 (SUNITINIB MALATE) [Suspect]
     Indication: GASTROINTESTINAL STROMAL TUMOUR
     Dosage: 50 MG (50 MG, CYCLIC INTERVAL: DAY 1-28 OF 6 WEEKS), ORAL
     Route: 048
     Dates: start: 20041013, end: 20041224
  2. CLOBETASOL (CLOBETASOL) [Concomitant]
  3. COLACE (DOCUSATE SODIUM) [Concomitant]
  4. FENTANYL [Concomitant]
  5. LASIX [Concomitant]
  6. ZOFRAN [Concomitant]
  7. REGLAN [Concomitant]
  8. POTASSIUM CHLORIDE [Concomitant]

REACTIONS (5)
  - GASTROINTESTINAL STROMAL TUMOUR [None]
  - HYPOTENSION [None]
  - MALIGNANT NEOPLASM PROGRESSION [None]
  - TUMOUR HAEMORRHAGE [None]
  - TUMOUR NECROSIS [None]
